FAERS Safety Report 23035953 (Version 1)
Quarter: 2023Q4

REPORT INFORMATION
  Report Type: Spontaneous
  Country: IN (occurrence: IN)
  Receive Date: 20231006
  Receipt Date: 20231006
  Transmission Date: 20240110
  Serious: Yes (Death, Life-Threatening, Hospitalization)
  Sender: FDA-Public Use
  Company Number: IN-BoehringerIngelheim-2023-BI-265004

PATIENT
  Age: 21 Year
  Sex: Female

DRUGS (1)
  1. DABIGATRAN [Suspect]
     Active Substance: DABIGATRAN
     Indication: Anticoagulant therapy
     Route: 048

REACTIONS (16)
  - Pulmonary sepsis [Fatal]
  - Pneumonia [Fatal]
  - Disseminated intravascular coagulation [Not Recovered/Not Resolved]
  - Post procedural complication [Not Recovered/Not Resolved]
  - Budd-Chiari syndrome [Unknown]
  - Haemorrhagic cerebral infarction [Not Recovered/Not Resolved]
  - Procedural haemorrhage [Recovering/Resolving]
  - Cerebral haematoma [Not Recovered/Not Resolved]
  - Brain herniation [Not Recovered/Not Resolved]
  - Thrombocytopenia [Not Recovered/Not Resolved]
  - Thrombosis [Not Recovered/Not Resolved]
  - Megakaryocytes decreased [Unknown]
  - Pneumonia [Unknown]
  - Fungaemia [Unknown]
  - Spontaneous bacterial peritonitis [Unknown]
  - Device related infection [Unknown]
